FAERS Safety Report 23687247 (Version 1)
Quarter: 2024Q1

REPORT INFORMATION
  Report Type: Spontaneous
  Country: CA (occurrence: CA)
  Receive Date: 20240329
  Receipt Date: 20240329
  Transmission Date: 20240410
  Serious: Yes (Hospitalization, Other)
  Sender: FDA-Public Use
  Company Number: CA-Ascend Therapeutics US, LLC-2155000

PATIENT
  Age: 53 Year
  Sex: Female

DRUGS (14)
  1. ESTROGEL [Suspect]
     Active Substance: ESTRADIOL
     Indication: Product used for unknown indication
     Route: 062
  2. ESTROGEL [Suspect]
     Active Substance: ESTRADIOL
     Route: 062
  3. VITAMINS NOS [Suspect]
     Active Substance: VITAMINS
     Route: 048
  4. VITAMIN D [Suspect]
     Active Substance: VITAMIN D NOS
     Route: 048
  5. VENLAFAXINE HYDROCHLORIDE [Suspect]
     Active Substance: VENLAFAXINE HYDROCHLORIDE
     Route: 065
  6. VARENICLINE TARTRATE [Suspect]
     Active Substance: VARENICLINE TARTRATE
     Route: 065
  7. SOMATROPIN [Suspect]
     Active Substance: SOMATROPIN
     Route: 065
  8. DIMETHYL SULFONE [Suspect]
     Active Substance: DIMETHYL SULFONE
     Route: 065
  9. LORAZEPAM [Suspect]
     Active Substance: LORAZEPAM
     Route: 065
  10. FISH OIL [Suspect]
     Active Substance: FISH OIL
     Route: 065
  11. LINOLEIC ACID, CONJUGATED [Suspect]
     Active Substance: LINOLEIC ACID, CONJUGATED
     Route: 048
  12. BUDESONIDE\FORMOTEROL FUMARATE [Suspect]
     Active Substance: BUDESONIDE\FORMOTEROL FUMARATE
  13. PROBIOTICS NOS [Suspect]
     Active Substance: PROBIOTICS NOS
     Route: 048
  14. PROMETRIUM [Suspect]
     Active Substance: PROGESTERONE
     Route: 065

REACTIONS (4)
  - Drug-induced liver injury [Unknown]
  - Hepatic necrosis [Unknown]
  - Hepatic encephalopathy [Unknown]
  - Hepatic cirrhosis [Unknown]
